FAERS Safety Report 7623900 (Version 3)
Quarter: 2013Q4

REPORT INFORMATION
  Report Type: Spontaneous
  Country: US (occurrence: US)
  Receive Date: 20101011
  Receipt Date: 20131115
  Transmission Date: 20140711
  Serious: Yes (Hospitalization, Other)
  Sender: FDA-Public Use
  Company Number: US-BAYER-201036156NA

PATIENT
  Age: 35 Year
  Sex: Female
  Weight: 86.17 kg

DRUGS (13)
  1. YASMIN [Suspect]
     Dosage: UNK
     Route: 048
     Dates: start: 2007, end: 2008
  2. VITAMIN C [ASCORBIC ACID] [Concomitant]
  3. MOTRIN [Concomitant]
  4. ESOMEPRAZOLE [Concomitant]
     Dosage: 20 MG, QD
     Dates: start: 20080623
  5. ZANTAC [Concomitant]
     Dosage: UNK
     Dates: start: 20080701
  6. TORADOL [Concomitant]
     Dosage: UNK
     Route: 030
     Dates: start: 20080820
  7. HYDROCODONE [Concomitant]
     Dosage: UNK
     Dates: start: 20080820
  8. SURFAK STOOL SOFTENER [Concomitant]
     Indication: CONSTIPATION
     Dosage: UNK
     Dates: start: 20080821
  9. METOCLOPRAMIDE HCL [Concomitant]
     Dosage: 10 MG 1-3 TIMES DAILY UNTIL NORMAL BOWEL MOVEMENT
     Dates: start: 20080821
  10. SIMETHICONE [Concomitant]
     Indication: FLATULENCE
     Dosage: 80 MG, QD
     Dates: start: 20080821
  11. DOCUSATE SODIUM [Concomitant]
     Dosage: 240 MG, BID
     Dates: start: 20080821
  12. TRAMADOL [Concomitant]
     Dosage: 50 MG 1-2 Q (INTERPRETED AS EVERY) 4-6 H (HOURS) TO MAX OF 8 TABS PER DAY
     Dates: start: 20080825
  13. OMEPRAZOLE [Concomitant]
     Dosage: 20 MG ONCE A DAY 30 MINUTES BEFORE A MEAL
     Dates: start: 20080827

REACTIONS (6)
  - Gallbladder non-functioning [None]
  - Cholecystitis [None]
  - Biliary dyskinesia [None]
  - Drug hypersensitivity [None]
  - Abdominal pain [None]
  - Procedural pain [None]
